FAERS Safety Report 5792773-0 (Version None)
Quarter: 2008Q2

REPORT INFORMATION
  Report Type: 
  Country: None (occurrence: None)
  Receive Date: 20080624
  Receipt Date: 20080618
  Transmission Date: 20081010
  Serious: Yes (Hospitalization)
  Sender: FDA-Public Use
  Company Number: 2008BI012030

PATIENT
  Age: 46 Year
  Sex: Female

DRUGS (2)
  1. TYSABRI [Suspect]
     Indication: MULTIPLE SCLEROSIS
     Dosage: 300 MG; QM; IV
     Route: 042
     Dates: start: 20071008
  2. AVONEX [Concomitant]

REACTIONS (6)
  - CALCULUS URETERIC [None]
  - INFECTION [None]
  - NEPHROLITHIASIS [None]
  - PROTEINURIA [None]
  - RENAL FAILURE [None]
  - URINARY SEDIMENT ABNORMAL [None]
